FAERS Safety Report 8361127-5 (Version None)
Quarter: 2012Q1

REPORT INFORMATION
  Report Type: 
  Country: None (occurrence: None)
  Receive Date: 20120323
  Receipt Date: 20110411
  Transmission Date: 20120608
  Serious: Yes (Other)
  Sender: FDA-Public Use
  Company Number: 163-21880-11040777

PATIENT
  Age: 61 Year
  Sex: Male

DRUGS (1)
  1. REVLIMID [Suspect]
     Indication: MULTIPLE MYELOMA
     Dosage: 10 MG, DAILY FOR 28 DAYS, PO
     Route: 048
     Dates: start: 20110315

REACTIONS (2)
  - DEEP VEIN THROMBOSIS [None]
  - DRUG INTOLERANCE [None]
